FAERS Safety Report 17728391 (Version 1)
Quarter: 2020Q2

REPORT INFORMATION
  Report Type: Spontaneous
  Country: US (occurrence: US)
  Receive Date: 20200430
  Receipt Date: 20200430
  Transmission Date: 20200714
  Serious: No
  Sender: FDA-Public Use
  Company Number: US-HORIZON-PRO-0104-2020

PATIENT
  Age: 2 Year
  Sex: Male

DRUGS (1)
  1. PROCYSBI [Suspect]
     Active Substance: CYSTEAMINE BITARTRATE
     Indication: CYSTINOSIS
     Dosage: 250 MG (3 X 75 MG CAPSULE) AND (1 X 25 MG CAPSULE) TWICE DAILY FOR 2 WEEKS THEN INCREASE

REACTIONS (1)
  - Nausea [Unknown]
